FAERS Safety Report 18197475 (Version 1)
Quarter: 2020Q3

REPORT INFORMATION
  Report Type: Spontaneous
  Country: BE (occurrence: BE)
  Receive Date: 20200826
  Receipt Date: 20200826
  Transmission Date: 20201103
  Serious: Yes (Other)
  Sender: FDA-Public Use
  Company Number: BE-AUROBINDO-AUR-APL-2020-044453

PATIENT
  Age: 35 Year
  Sex: Male

DRUGS (5)
  1. AZATHIOPRINE. [Suspect]
     Active Substance: AZATHIOPRINE
     Indication: ACANTHAMOEBA KERATITIS
     Dosage: 150 MILLIGRAM, ONCE A DAY
     Route: 065
  2. SOLU?MEDROL [Suspect]
     Active Substance: METHYLPREDNISOLONE SODIUM SUCCINATE
     Indication: ACANTHAMOEBA KERATITIS
     Dosage: 1 GRAM (FOR 3 DAYS)
     Route: 042
  3. METHYLPREDNISOLONE. [Suspect]
     Active Substance: METHYLPREDNISOLONE
     Indication: ACANTHAMOEBA KERATITIS
     Dosage: UNK
     Route: 048
  4. NEPAFENAC [Suspect]
     Active Substance: NEPAFENAC
     Indication: ACANTHAMOEBA KERATITIS
     Dosage: 0.1 PERCENT, ONCE A DAY
     Route: 061
  5. IBUPROFEN. [Suspect]
     Active Substance: IBUPROFEN
     Indication: ACANTHAMOEBA KERATITIS
     Dosage: 600 MILLIGRAM, 3 TIMES A DAY
     Route: 048

REACTIONS (11)
  - Osteonecrosis [Unknown]
  - Toxicity to various agents [Unknown]
  - Blood lactate dehydrogenase increased [Unknown]
  - Drug ineffective [Unknown]
  - Anaemia [Unknown]
  - Bronchopulmonary aspergillosis [Unknown]
  - Myopathy [Unknown]
  - Corneal oedema [Unknown]
  - Muscle atrophy [Unknown]
  - Asthenia [Unknown]
  - Scleritis [Unknown]
